FAERS Safety Report 5965055-1 (Version None)
Quarter: 2008Q4

REPORT INFORMATION
  Report Type: 
  Country: None (occurrence: None)
  Receive Date: 20081121
  Receipt Date: 20081105
  Transmission Date: 20090506
  Serious: Yes (Hospitalization)
  Sender: FDA-Public Use
  Company Number: 2008US002612

PATIENT
  Age: 78 Year
  Sex: Female
  Weight: 56.7 kg

DRUGS (1)
  1. AMEVIVE [Suspect]
     Indication: PSORIASIS
     Dosage: 15 MG, WEEKLY, INTRAMUSCULAR
     Route: 030
     Dates: start: 20030909

REACTIONS (3)
  - BLADDER CANCER [None]
  - HYDRONEPHROSIS [None]
  - OBSTRUCTIVE UROPATHY [None]
